FAERS Safety Report 8309373-0 (Version None)
Quarter: 2012Q2

REPORT INFORMATION
  Report Type: 
  Country: None (occurrence: None)
  Receive Date: 20120420
  Receipt Date: 20120411
  Transmission Date: 20120825
  Serious: Yes (Other)
  Sender: FDA-Public Use
  Company Number: 2012SP006194

PATIENT
  Age: 62 Year
  Sex: Male

DRUGS (3)
  1. REBETOL [Suspect]
     Indication: HEPATITIS C
     Dosage: 600 MG;BID
     Dates: start: 20111201
  2. VICTRELIS [Suspect]
     Indication: HEPATITIS C
     Dates: start: 20111201, end: 20120123
  3. PEGASYS [Suspect]
     Indication: HEPATITIS C
     Dosage: 135 MCG;SC
     Route: 058
     Dates: start: 20111201

REACTIONS (4)
  - RENAL FAILURE [None]
  - DIABETES MELLITUS [None]
  - PULMONARY OEDEMA [None]
  - HAEMOGLOBIN DECREASED [None]
